FAERS Safety Report 5047137-4 (Version None)
Quarter: 2006Q3

REPORT INFORMATION
  Report Type: 
  Country: None (occurrence: None)
  Receive Date: 20060703
  Receipt Date: 20060622
  Transmission Date: 20061208
  Serious: Yes (Hospitalization)
  Sender: FDA-Public Use
  Company Number: 2006072237

PATIENT
  Sex: Male

DRUGS (3)
  1. ZYVOX [Suspect]
     Indication: DEVICE RELATED INFECTION
     Dosage: 1200 MG (600 MG, 2 IN 1 D), ORAL
     Route: 048
     Dates: start: 20060327
  2. REMERON [Concomitant]
  3. DIFLUCAN [Concomitant]

REACTIONS (8)
  - DRUG INTERACTION [None]
  - FUNGAL INFECTION [None]
  - HYPERCALCAEMIA [None]
  - HYPERPHOSPHATAEMIA [None]
  - POSTOPERATIVE WOUND COMPLICATION [None]
  - SKIN GRAFT [None]
  - SYMPATHOMIMETIC EFFECT [None]
  - WOUND DEHISCENCE [None]
